FAERS Safety Report 7675186-6 (Version None)
Quarter: 2011Q3

REPORT INFORMATION
  Report Type: 
  Country: None (occurrence: None)
  Receive Date: 20110810
  Receipt Date: 20110810
  Transmission Date: 20111222
  Serious: Yes (Hospitalization)
  Sender: FDA-Public Use
  Company Number: None

PATIENT
  Sex: Female
  Weight: 21.1 kg

DRUGS (1)
  1. LAMOTRIGINE [Suspect]
     Indication: ACQUIRED EPILEPTIC APHASIA
     Route: 048
     Dates: start: 20110505, end: 20110514

REACTIONS (11)
  - RASH PAPULAR [None]
  - RASH ERYTHEMATOUS [None]
  - GINGIVAL ERYTHEMA [None]
  - CHEILITIS [None]
  - LIP ULCERATION [None]
  - HYPOPHAGIA [None]
  - STEVENS-JOHNSON SYNDROME [None]
  - MACULE [None]
  - ORAL DISORDER [None]
  - RASH PRURITIC [None]
  - ERYTHEMA [None]
